FAERS Safety Report 4565524-5 (Version None)
Quarter: 2005Q1

REPORT INFORMATION
  Report Type: 
  Country: None (occurrence: None)
  Receive Date: 20050131
  Receipt Date: 20050120
  Transmission Date: 20050727
  Serious: Yes (Hospitalization)
  Sender: FDA-Public Use
  Company Number: FR-GLAXOSMITHKLINE-B0365833A

PATIENT
  Age: 56 Year
  Sex: Male

DRUGS (19)
  1. AUGMENTIN [Suspect]
     Route: 048
     Dates: start: 20040714, end: 20041024
  2. FOLINIC ACID [Suspect]
     Indication: LYMPHOMA
     Dosage: 75MG PER DAY
     Route: 042
     Dates: start: 20040920
  3. ARACYTINE [Suspect]
     Indication: LYMPHOMA
     Dosage: 179MG PER DAY
     Route: 042
     Dates: start: 20040920
  4. METHOTREXATE [Suspect]
     Indication: LYMPHOMA
     Route: 042
     Dates: start: 20040601
  5. RITUXIMAB [Suspect]
     Indication: LYMPHOMA
     Route: 042
     Dates: start: 20040601
  6. ZOPHREN [Suspect]
     Route: 042
     Dates: start: 20040920
  7. CYCLOPHOSPHAMIDE [Concomitant]
     Indication: LYMPHOMA
     Route: 065
     Dates: start: 20040601
  8. EPIRUBICIN [Concomitant]
     Indication: LYMPHOMA
     Route: 065
     Dates: start: 20040601
  9. VINDESINE [Concomitant]
     Indication: LYMPHOMA
     Route: 065
     Dates: start: 20040601
  10. PREDNISONE [Concomitant]
     Indication: LYMPHOMA
     Route: 065
     Dates: start: 20040601
  11. OFLOCET [Concomitant]
     Route: 065
     Dates: start: 20040714
  12. NEXIUM [Concomitant]
     Route: 065
  13. IMOVANE [Concomitant]
     Route: 065
  14. SPASFON [Concomitant]
     Route: 065
  15. GAVISCON [Concomitant]
     Route: 065
  16. DI ANTALVIC [Concomitant]
     Route: 065
  17. XANAX [Concomitant]
     Route: 065
  18. PYOSTACINE [Concomitant]
     Route: 065
  19. SOLU-MEDROL [Concomitant]
     Route: 065
     Dates: start: 20040920

REACTIONS (9)
  - EOSINOPHILIA [None]
  - LARYNGEAL OEDEMA [None]
  - LEUKOCYTOCLASTIC VASCULITIS [None]
  - OEDEMA [None]
  - PRURITUS [None]
  - RASH [None]
  - RASH PAPULAR [None]
  - RASH VESICULAR [None]
  - WEIGHT INCREASED [None]
